FAERS Safety Report 26021330 (Version 1)
Quarter: 2025Q4

REPORT INFORMATION
  Report Type: Spontaneous
  Country: US (occurrence: US)
  Receive Date: 20251110
  Receipt Date: 20251110
  Transmission Date: 20260118
  Serious: Yes (Other)
  Sender: SANOFI AVENTIS
  Company Number: US-SA-2025SA332149

PATIENT
  Age: 76 Year
  Sex: Male

DRUGS (1)
  1. DUPILUMAB [Suspect]
     Active Substance: DUPILUMAB
     Indication: Eustachian tube dysfunction
     Dosage: UNK

REACTIONS (5)
  - Immune thrombocytopenia [Recovering/Resolving]
  - Bullous haemorrhagic dermatosis [Recovering/Resolving]
  - Petechiae [Recovering/Resolving]
  - Mouth haemorrhage [Recovering/Resolving]
  - Off label use [Recovering/Resolving]
